FAERS Safety Report 5552506-X (Version None)
Quarter: 2007Q4

REPORT INFORMATION
  Report Type: 
  Country: None (occurrence: None)
  Receive Date: 20071205
  Receipt Date: 20071127
  Transmission Date: 20080405
  Serious: Yes (Other)
  Sender: FDA-Public Use
  Company Number: CHPA2007US12810

PATIENT
  Age: 5 Month
  Sex: Female
  Weight: 7.3 kg

DRUGS (1)
  1. TRIAMINIC THIN STRIPS-LONG ACTING COUGH (NCH)(DEXTROMETHORPHAN HYDROBR [Suspect]
     Indication: COUGH
     Dosage: 5.5 MG,ONCE/SINGLE,ORAL
     Route: 048
     Dates: start: 20071126, end: 20071126

REACTIONS (4)
  - AGITATION NEONATAL [None]
  - EYE DISORDER [None]
  - FEEDING DISORDER NEONATAL [None]
  - INCORRECT DOSE ADMINISTERED [None]
